FAERS Safety Report 5095486-6 (Version None)
Quarter: 2006Q3

REPORT INFORMATION
  Report Type: 
  Country: None (occurrence: None)
  Receive Date: 20060901
  Receipt Date: 20060901
  Transmission Date: 20061208
  Serious: Yes (Life-Threatening, Disabling)
  Sender: FDA-Public Use
  Company Number: None

PATIENT
  Sex: Female

DRUGS (1)
  1. CARDIZEM [Suspect]
     Dosage: RATE 6 VOLUME 48 IV
     Route: 042
     Dates: start: 19971120, end: 20060827

REACTIONS (2)
  - DEVICE FAILURE [None]
  - MEDICATION ERROR [None]
